FAERS Safety Report 7028220-0 (Version None)
Quarter: 2010Q3

REPORT INFORMATION
  Report Type: 
  Country: None (occurrence: None)
  Receive Date: 20100930
  Receipt Date: 20091020
  Transmission Date: 20110219
  Serious: Yes (Hospitalization, Disabling)
  Sender: FDA-Public Use
  Company Number: 2009-4094

PATIENT
  Age: 55 Year
  Sex: Male

DRUGS (9)
  1. DYSPORT [Suspect]
     Indication: MUSCLE SPASTICITY
     Dosage: 470 UNITS IN RIGHT ARM AND 100 UNITS IN RECTUS FEMORIS (570 UNITS, SINGLE CYCLE),
     Dates: start: 20090211, end: 20090211
  2. HERMOLEPSIN RETARD (CARBAMAZEPINE) [Concomitant]
  3. ACETYLSALICYLIC ACID SRT [Concomitant]
  4. PERSANTIN DEPOT (DIPYRIDAMOLE) [Concomitant]
  5. BETOLVEX (CYANOCOBALAMIN) [Concomitant]
  6. SELOKEN ZOC (METOPROLOL SUCCINATE) [Concomitant]
  7. NATRUM GLAND (ALL OTHER THERAPEUTIC PRODUCTS) [Concomitant]
  8. LASIX RETARD (TERBOLAN) [Concomitant]
  9. SIMVASTATIN [Concomitant]

REACTIONS (1)
  - DEEP VEIN THROMBOSIS [None]
